FAERS Safety Report 7764669-6 (Version None)
Quarter: 2011Q3

REPORT INFORMATION
  Report Type: 
  Country: None (occurrence: None)
  Receive Date: 20110921
  Receipt Date: 20110913
  Transmission Date: 20111222
  Serious: Yes (Other)
  Sender: FDA-Public Use
  Company Number: SE-UCBSA-041288

PATIENT
  Sex: Female

DRUGS (6)
  1. CIMZIA [Suspect]
     Indication: RHEUMATOID ARTHRITIS
     Route: 058
     Dates: start: 20110509, end: 20110912
  2. NONSTEROIDAL ANTI INFLAMMATORY DRUG-COX1 [Concomitant]
     Dates: start: 20010820, end: 20020806
  3. NONSTEROIDAL ANTI INFLAMMATORY DRUG-COX1 [Concomitant]
     Dates: start: 20040713
  4. NONSTEROIDAL ANTI INFLAMMATORY DRUG-COX1 [Concomitant]
     Dates: start: 19990818, end: 20010312
  5. PREDNISOLONE [Concomitant]
     Dosage: 5,5 MG
     Dates: start: 20080625
  6. PREDNISOLONE [Concomitant]
     Dosage: 2.5,2.5 MG
     Dates: start: 20010312, end: 20010820

REACTIONS (1)
  - INTESTINAL HAEMORRHAGE [None]
